FAERS Safety Report 13103684 (Version 1)
Quarter: 2017Q1

REPORT INFORMATION
  Report Type: Spontaneous
  Country: US (occurrence: US)
  Receive Date: 20170111
  Receipt Date: 20170111
  Transmission Date: 20170428
  Serious: Yes (Hospitalization)
  Sender: FDA-Public Use
  Company Number: US-ACCORD-047274

PATIENT
  Sex: Male
  Weight: 2.6 kg

DRUGS (2)
  1. ESCITALOPRAM [Suspect]
     Active Substance: ESCITALOPRAM OXALATE
     Indication: SCHIZOPHRENIA
     Route: 064
  2. BUPROPION/BUPROPION HYDROCHLORIDE [Suspect]
     Active Substance: BUPROPION HYDROCHLORIDE
     Indication: SCHIZOPHRENIA
     Route: 064

REACTIONS (8)
  - Necrotising enterocolitis neonatal [Not Recovered/Not Resolved]
  - Hypoglycaemia [Recovered/Resolved]
  - Maternal drugs affecting foetus [None]
  - Foetal exposure during pregnancy [Unknown]
  - Irritability [Recovering/Resolving]
  - Hypertonia [Not Recovered/Not Resolved]
  - Tremor [Recovering/Resolving]
  - Hypothermia [Unknown]
